FAERS Safety Report 17036638 (Version 2)
Quarter: 2019Q4

REPORT INFORMATION
  Report Type: Spontaneous
  Country: JP (occurrence: JP)
  Receive Date: 20191115
  Receipt Date: 20191122
  Transmission Date: 20200122
  Serious: Yes (Death, Other)
  Sender: FDA-Public Use
  Company Number: JP-SAKK-2019SA315352AA

PATIENT
  Age: 67 Year
  Sex: Female

DRUGS (1)
  1. TAXOTERE [Suspect]
     Active Substance: DOCETAXEL
     Indication: BREAST CANCER
     Dosage: DOSAGE: 75 MG/M2
     Route: 041

REACTIONS (19)
  - Gastrointestinal tract mucosal pigmentation [Recovering/Resolving]
  - Megacolon [Recovering/Resolving]
  - Loss of consciousness [Fatal]
  - General physical health deterioration [Fatal]
  - Pulmonary artery thrombosis [Fatal]
  - Dehydration [Recovering/Resolving]
  - Impaired gastric emptying [Recovering/Resolving]
  - Pulmonary embolism [Fatal]
  - Abdominal distension [Recovering/Resolving]
  - Intra-abdominal pressure increased [Unknown]
  - Hypercoagulation [Unknown]
  - Neutrophil count decreased [Unknown]
  - Visceral congestion [Fatal]
  - Nausea [Recovering/Resolving]
  - Intestinal ischaemia [Unknown]
  - Vasospasm [Fatal]
  - Ileus [Recovering/Resolving]
  - Blood pressure decreased [Fatal]
  - Faecaloma [Recovering/Resolving]
